FAERS Safety Report 11867972 (Version 1)
Quarter: 2015Q4

REPORT INFORMATION
  Report Type: Spontaneous
  Country: KR (occurrence: KR)
  Receive Date: 20151224
  Receipt Date: 20151224
  Transmission Date: 20160305
  Serious: Yes (Other)
  Sender: FDA-Public Use
  Company Number: ALCN2015KR008020

PATIENT
  Age: 2 Month
  Sex: Male
  Weight: 2 kg

DRUGS (2)
  1. MYDFRIN [Suspect]
     Active Substance: PHENYLEPHRINE HYDROCHLORIDE
     Indication: MYDRIASIS
     Dosage: 1 GTT, UNK
     Route: 047
  2. MYDRIACYL [Suspect]
     Active Substance: TROPICAMIDE
     Indication: MYDRIASIS
     Dosage: 1 GTT, 15 MINUTES BEFORE SURGERY
     Route: 047

REACTIONS (1)
  - Bronchospasm [Recovered/Resolved]
